FAERS Safety Report 10355224 (Version 1)
Quarter: 2014Q3

REPORT INFORMATION
  Report Type: Spontaneous
  Country: US (occurrence: None)
  Receive Date: 20140729
  Receipt Date: 20140729
  Transmission Date: 20150326
  Serious: Yes (Hospitalization)
  Sender: FDA-Public Use
  Company Number: 2454978

PATIENT
  Age: 76 Year
  Sex: Male
  Weight: 87.4 kg

DRUGS (12)
  1. SALBUTAMOL [Concomitant]
     Active Substance: ALBUTEROL
  2. GEMCITABINE HYDROCHLORIDE. [Suspect]
     Active Substance: GEMCITABINE HYDROCHLORIDE
     Indication: SARCOMA METASTATIC
     Dosage: 900 MG/M2, DAY 1 AND 8 EVERY 21 DAYS, INTRAVENOUS DRIP
     Route: 041
     Dates: start: 20140616, end: 20140623
  3. FISH OIL [Concomitant]
     Active Substance: FISH OIL
  4. HYDROXYZINE [Concomitant]
     Active Substance: HYDROXYZINE\HYDROXYZINE HYDROCHLORIDE
  5. ALLOPURINOL. [Concomitant]
     Active Substance: ALLOPURINOL
  6. PLACEBO [Suspect]
     Active Substance: UNSPECIFIED INGREDIENT
     Indication: SARCOMA METASTATIC
     Dosage: DAY 1 AND 8 EVERY 21 DAYS
     Route: 041
     Dates: start: 20140616, end: 20140623
  7. SERETIDE [Concomitant]
     Active Substance: FLUTICASONE FUROATE\SALMETEROL XINAFOATE
  8. THEOPHYLLINE [Concomitant]
     Active Substance: THEOPHYLLINE
  9. DOCETAXEL [Suspect]
     Active Substance: DOCETAXEL
     Indication: SARCOMA METASTATIC
     Route: 041
     Dates: start: 20140623, end: 20140623
  10. VALSARTAN. [Concomitant]
     Active Substance: VALSARTAN
  11. ATORVASTATIN CALCIUM. [Concomitant]
     Active Substance: ATORVASTATIN CALCIUM
  12. OXYGEN. [Concomitant]
     Active Substance: OXYGEN

REACTIONS (1)
  - Lobar pneumonia [None]

NARRATIVE: CASE EVENT DATE: 20140701
